FAERS Safety Report 7371040-8 (Version None)
Quarter: 2011Q1

REPORT INFORMATION
  Report Type: 
  Country: None (occurrence: None)
  Receive Date: 20110318
  Receipt Date: 20110318
  Transmission Date: 20110831
  Serious: No
  Sender: FDA-Public Use
  Company Number: None

PATIENT
  Age: 35 Year
  Sex: Female
  Weight: 47.6277 kg

DRUGS (2)
  1. BYSTOLIC [Suspect]
     Indication: HYPERTENSION
     Dates: start: 20110208, end: 20110317
  2. BYSTOLIC [Suspect]

REACTIONS (5)
  - VISUAL FIELD DEFECT [None]
  - BLINDNESS UNILATERAL [None]
  - VISUAL IMPAIRMENT [None]
  - PARAESTHESIA [None]
  - EYE DISORDER [None]
